FAERS Safety Report 9982496 (Version 1)
Quarter: 2014Q1

REPORT INFORMATION
  Report Type: Spontaneous
  Country: JP (occurrence: JP)
  Receive Date: 20140307
  Receipt Date: 20140307
  Transmission Date: 20141002
  Serious: Yes (Death)
  Sender: FDA-Public Use
  Company Number: JP-MALLINCKRODT-T201401458

PATIENT
  Age: 61 Year
  Sex: Male
  Weight: 63.8 kg

DRUGS (9)
  1. METHADONE [Suspect]
     Indication: CANCER PAIN
     Dosage: 10 MG, (30 MG DAILY DOSE)
     Route: 048
     Dates: start: 20130910, end: 20131001
  2. METHADONE [Suspect]
     Dosage: UNK, (35 MG DAILY DOSE)
     Route: 048
     Dates: start: 20131002, end: 20131124
  3. OXINORM [Concomitant]
     Dosage: UNK, PRN
     Route: 048
     Dates: start: 20130912
  4. FENTANYL CITRATE [Concomitant]
     Dosage: 1.44 MG, UNK
     Route: 051
     Dates: start: 20130731, end: 20130912
  5. OXYFAST [Concomitant]
     Dosage: 24 MG, UNK
     Route: 051
     Dates: start: 20130905, end: 20130913
  6. KETALAR [Concomitant]
     Dosage: 72 MG, UNK
     Route: 051
     Dates: start: 20130810, end: 20130912
  7. LYRICA [Concomitant]
     Dosage: 100 MG, UNK
     Route: 048
     Dates: start: 20130712, end: 20131124
  8. CALONAL [Concomitant]
     Dosage: 3600 MG, UNK
     Route: 048
     Dates: start: 20130726, end: 20131124
  9. MEXITIL [Concomitant]
     Dosage: 300 MG, UNK
     Route: 048
     Dates: start: 20130823, end: 20131124

REACTIONS (1)
  - Malignant neoplasm of unknown primary site [Fatal]
